FAERS Safety Report 8191497-2 (Version None)
Quarter: 2012Q1

REPORT INFORMATION
  Report Type: 
  Country: None (occurrence: None)
  Receive Date: 20120307
  Receipt Date: 20120228
  Transmission Date: 20120608
  Serious: No
  Sender: FDA-Public Use
  Company Number: US-BAYER-2012-020490

PATIENT
  Age: 28 Year
  Sex: Female
  Weight: 113 kg

DRUGS (1)
  1. ALEVE (CAPLET) [Suspect]
     Indication: PAIN IN EXTREMITY
     Dosage: 2 DF, ONCE
     Route: 048
     Dates: start: 20120228

REACTIONS (2)
  - FEELING OF BODY TEMPERATURE CHANGE [None]
  - CHILLS [None]
